FAERS Safety Report 7536966-0 (Version None)
Quarter: 2011Q2

REPORT INFORMATION
  Report Type: 
  Country: None (occurrence: None)
  Receive Date: 20110608
  Receipt Date: 20110608
  Transmission Date: 20111010
  Serious: Yes (Hospitalization)
  Sender: FDA-Public Use
  Company Number: None

PATIENT
  Age: 79 Year
  Sex: Male
  Weight: 83 kg

DRUGS (1)
  1. CIPROFLOXACIN [Suspect]
     Indication: URINARY TRACT INFECTION
     Dosage: 500 MG BID PO
     Route: 048
     Dates: start: 20110324, end: 20110326

REACTIONS (5)
  - VOMITING [None]
  - DIARRHOEA [None]
  - NAUSEA [None]
  - CLOSTRIDIUM TEST POSITIVE [None]
  - RENAL FAILURE ACUTE [None]
